FAERS Safety Report 6744840-2 (Version None)
Quarter: 2010Q2

REPORT INFORMATION
  Report Type: 
  Country: None (occurrence: None)
  Receive Date: 20100527
  Receipt Date: 20100323
  Transmission Date: 20101027
  Serious: No
  Sender: FDA-Public Use
  Company Number: US-BRISTOL-MYERS SQUIBB COMPANY-15031305

PATIENT
  Age: 69 Year
  Sex: Female
  Weight: 78 kg

DRUGS (4)
  1. ONGLYZA [Suspect]
     Indication: DIABETES MELLITUS
  2. DIOVAN [Concomitant]
  3. LOZOL [Concomitant]
  4. ATENOLOL [Concomitant]

REACTIONS (2)
  - HEADACHE [None]
  - PARAESTHESIA [None]
